FAERS Safety Report 12897633 (Version 1)
Quarter: 2016Q4

REPORT INFORMATION
  Report Type: Spontaneous
  Country: GB (occurrence: GB)
  Receive Date: 20161031
  Receipt Date: 20161031
  Transmission Date: 20170207
  Serious: Yes (Other)
  Sender: FDA-Public Use
  Company Number: PHHY2016GB144946

PATIENT
  Age: 89 Year
  Sex: Female

DRUGS (9)
  1. DERMOL [Concomitant]
     Active Substance: BENZALKONIUM CHLORIDE\CHLORHEXIDINE HYDROCHLORIDE\ISOPROPYL MYRISTATE\PARAFFIN
     Indication: PRODUCT USED FOR UNKNOWN INDICATION
     Dosage: USE TO WASH SKIN
     Route: 065
     Dates: start: 20160617
  2. RELETRANS [Suspect]
     Active Substance: BUPRENORPHINE
     Indication: PRODUCT USED FOR UNKNOWN INDICATION
     Route: 065
     Dates: start: 20161010
  3. BUPRENORPHINE. [Concomitant]
     Active Substance: BUPRENORPHINE
     Indication: PRODUCT USED FOR UNKNOWN INDICATION
     Dosage: 15 UG, QW, TOTAL DOSE OF 15MCG/HO...
     Route: 065
     Dates: start: 20160617, end: 20161010
  4. METFORMIN [Concomitant]
     Active Substance: METFORMIN HYDROCHLORIDE
     Indication: PRODUCT USED FOR UNKNOWN INDICATION
     Dosage: 5 ML, TID, WITH MEALS
     Route: 065
     Dates: start: 20160617
  5. PARACETAMOL [Concomitant]
     Active Substance: ACETAMINOPHEN
     Indication: PRODUCT USED FOR UNKNOWN INDICATION
     Dosage: 10-20ML UP TO FOUR TIMES IN 24 HOURS ...
     Route: 065
     Dates: start: 20160617
  6. PIROXICAM. [Concomitant]
     Active Substance: PIROXICAM
     Indication: PAIN
     Dosage: 1 DF THREE TIMES A DAY TO PAINFUL AREA
     Route: 065
     Dates: start: 20160617
  7. SUDOCREM [Concomitant]
     Indication: PRODUCT USED FOR UNKNOWN INDICATION
     Dosage: APPLY GENEROUSLY AND FREQUENTLY AS A BARRIER CREAM
     Route: 065
     Dates: start: 20160617
  8. LORATADINE. [Concomitant]
     Active Substance: LORATADINE
     Indication: ANTIALLERGIC THERAPY
     Dosage: 1 DF, QD
     Route: 065
     Dates: start: 20160617
  9. CETRABEN EMOLLIENT [Concomitant]
     Indication: PRODUCT USED FOR UNKNOWN INDICATION
     Dosage: USE AS MOISTURE
     Route: 065
     Dates: start: 20160617

REACTIONS (3)
  - Application site rash [Unknown]
  - Product substitution issue [Unknown]
  - Application site vesicles [Recovering/Resolving]

NARRATIVE: CASE EVENT DATE: 20161010
